FAERS Safety Report 13135880 (Version 1)
Quarter: 2017Q1

REPORT INFORMATION
  Report Type: Spontaneous
  Country: US (occurrence: US)
  Receive Date: 20170120
  Receipt Date: 20170120
  Transmission Date: 20170428
  Serious: Yes (Death)
  Sender: FDA-Public Use
  Company Number: US-DSA1-US-2012VAL000280

PATIENT
  Sex: Female

DRUGS (3)
  1. LASIX [Concomitant]
     Active Substance: FUROSEMIDE
     Indication: PRODUCT USED FOR UNKNOWN INDICATION
     Dosage: UNK
  2. METHERGINE [Concomitant]
     Active Substance: METHYLERGONOVINE MALEATE
     Indication: PRODUCT USED FOR UNKNOWN INDICATION
     Dosage: UNK
  3. PARLODEL [Suspect]
     Active Substance: BROMOCRIPTINE MESYLATE
     Indication: LACTATION INHIBITION THERAPY
     Dosage: 2.5 MG, BID
     Route: 065

REACTIONS (1)
  - Arrhythmia [Fatal]
